FAERS Safety Report 24040690 (Version 1)
Quarter: 2024Q3

REPORT INFORMATION
  Report Type: Spontaneous
  Country: FR (occurrence: FR)
  Receive Date: 20240702
  Receipt Date: 20240702
  Transmission Date: 20241016
  Serious: Yes (Hospitalization)
  Sender: PFIZER
  Company Number: None

PATIENT
  Age: 9 Year
  Sex: Male
  Weight: 25 kg

DRUGS (4)
  1. DOXORUBICIN HYDROCHLORIDE [Suspect]
     Active Substance: DOXORUBICIN HYDROCHLORIDE
     Indication: Neuroblastoma
     Dosage: C4D6-N6 N^2 -} CAD7-N6 N^2
     Route: 042
     Dates: start: 20230113, end: 20230214
  2. VINCRISTINE SULFATE [Suspect]
     Active Substance: VINCRISTINE SULFATE
     Indication: Neuroblastoma
     Dosage: C4D1-N6 N^2 + C4D8-N6 N^2
     Route: 042
     Dates: start: 20230110, end: 20230217
  3. DACARBAZINE [Suspect]
     Active Substance: DACARBAZINE
     Indication: Neuroblastoma
     Dosage: C4D1-N6 N?2 -}CAD5-N4 N?2
     Route: 042
     Dates: start: 20230110, end: 20230214
  4. IFOSFAMIDE [Suspect]
     Active Substance: IFOSFAMIDE
     Indication: Neuroblastoma
     Dosage: C4D1-N6 N^2 -} PERFUSION DURATION = 120H
     Route: 042
     Dates: start: 20230110, end: 20230214

REACTIONS (1)
  - Febrile bone marrow aplasia [Recovered/Resolved]

NARRATIVE: CASE EVENT DATE: 20230223
